FAERS Safety Report 4899893-3 (Version None)
Quarter: 2006Q1

REPORT INFORMATION
  Report Type: 
  Country: None (occurrence: None)
  Receive Date: 20060118
  Receipt Date: 20060118
  Transmission Date: 20060701
  Serious: No
  Sender: FDA-Public Use
  Company Number: 2005001851

PATIENT
  Age: 65 Year
  Sex: Male

DRUGS (5)
  1. TARCEVA [Suspect]
     Indication: NON-SMALL CELL LUNG CANCER
     Dosage: 150 MG (QD), ORAL
     Route: 048
     Dates: start: 20050915, end: 20050923
  2. FOSAMAX [Concomitant]
  3. ATROVENT (IPRTROPIUM BROMIDE) [Concomitant]
  4. CALCIUM (CALCIUM) [Concomitant]
  5. VITAMINS (VITAMINS) [Concomitant]

REACTIONS (5)
  - DIARRHOEA [None]
  - EYE IRRITATION [None]
  - HERPES SIMPLEX [None]
  - RASH [None]
  - SKIN DISORDER [None]
